FAERS Safety Report 19592892 (Version 3)
Quarter: 2024Q2

REPORT INFORMATION
  Report Type: Other
  Country: IT (occurrence: None)
  Receive Date: 20210722
  Receipt Date: 20240530
  Transmission Date: 20240716
  Serious: Yes (Hospitalization, Other)
  Sender: FDA-Public Use
  Company Number: IT-ROCHE-2867637

PATIENT

DRUGS (2)
  1. TOCILIZUMAB [Suspect]
     Active Substance: TOCILIZUMAB
     Indication: COVID-19
     Route: 042
  2. BARICITINIB [Suspect]
     Active Substance: BARICITINIB
     Indication: COVID-19
     Route: 065

REACTIONS (11)
  - Pneumonia klebsiella [Unknown]
  - Pseudomonas infection [Unknown]
  - Staphylococcal infection [Unknown]
  - Enterobacter infection [Unknown]
  - Bacteraemia [Unknown]
  - Pneumonia [Unknown]
  - Urinary tract infection [Unknown]
  - Skin bacterial infection [Unknown]
  - Soft tissue infection [Unknown]
  - Abdominal infection [Unknown]
  - Haematological infection [Unknown]
